FAERS Safety Report 24564659 (Version 2)
Quarter: 2024Q4

REPORT INFORMATION
  Report Type: Report from Study
  Country: FR (occurrence: FR)
  Receive Date: 20241030
  Receipt Date: 20241105
  Transmission Date: 20250115
  Serious: No
  Sender: SERVIER
  Company Number: FR-SERVIER-S24013729

PATIENT

DRUGS (2)
  1. VORASIDENIB [Suspect]
     Active Substance: VORASIDENIB
     Indication: Product used for unknown indication
     Dosage: 40 MG, QD
     Route: 048
  2. VORASIDENIB [Suspect]
     Active Substance: VORASIDENIB
     Dosage: 30 MG, QD
     Route: 048

REACTIONS (1)
  - Hepatic cytolysis [Unknown]
